FAERS Safety Report 6916698-X (Version None)
Quarter: 2010Q3

REPORT INFORMATION
  Report Type: 
  Country: None (occurrence: None)
  Receive Date: 20100810
  Receipt Date: 20100805
  Transmission Date: 20110219
  Serious: Yes (Death, Hospitalization)
  Sender: FDA-Public Use
  Company Number: FR-ROCHE-719604

PATIENT
  Age: 58 Year
  Sex: Male

DRUGS (15)
  1. ROCEPHIN [Suspect]
     Indication: PRODUCT USED FOR UNKNOWN INDICATION
     Route: 065
     Dates: start: 20100426, end: 20100504
  2. VANCOMYCIN HCL [Suspect]
     Indication: PRODUCT USED FOR UNKNOWN INDICATION
     Dosage: FORM: INFUSION
     Route: 042
     Dates: start: 20100418, end: 20100512
  3. CANCIDAS [Suspect]
     Indication: PRODUCT USED FOR UNKNOWN INDICATION
     Dosage: FORM: INFUSION
     Route: 042
     Dates: start: 20100419, end: 20100513
  4. NEXIUM [Suspect]
     Indication: PRODUCT USED FOR UNKNOWN INDICATION
     Dosage: ROUTE: INTRAVENOUS INFUSION, FORM: POWDER FOR INJECTABLE SOLUTION OR INFUSION
     Route: 042
     Dates: start: 20100420
  5. PERFALGAN [Suspect]
     Indication: PRODUCT USED FOR UNKNOWN INDICATION
     Route: 042
     Dates: start: 20100401, end: 20100419
  6. PERFALGAN [Suspect]
     Dosage: ROUTE: INTRAVENOUS INFUSION, FORM: SOULTION FOR INFUSION, STRENGTH: 10 MG/ML
     Route: 042
     Dates: start: 20100427, end: 20100506
  7. PIPERACILLIN AND TAZOBACTAM [Suspect]
     Indication: PRODUCT USED FOR UNKNOWN INDICATION
     Route: 065
     Dates: start: 20100419, end: 20100424
  8. ZOVIRAX [Suspect]
     Indication: PRODUCT USED FOR UNKNOWN INDICATION
     Route: 065
     Dates: start: 20100419, end: 20100424
  9. SOLU-MEDROL [Suspect]
     Indication: PRODUCT USED FOR UNKNOWN INDICATION
     Route: 065
     Dates: start: 20100420, end: 20100425
  10. TEGELINE [Suspect]
     Indication: PRODUCT USED FOR UNKNOWN INDICATION
     Dosage: DRUG NAME: TEGELINE LFB
     Route: 065
     Dates: start: 20100420, end: 20100424
  11. PRIMPERAN TAB [Concomitant]
     Dates: start: 20100401, end: 20100419
  12. COLCHICINE [Concomitant]
     Dates: start: 20100401, end: 20100410
  13. TRIFLUCAN [Concomitant]
     Dates: start: 20100401, end: 20100419
  14. ZELITREX [Concomitant]
     Dates: start: 20100409, end: 20100419
  15. OFLOCET [Concomitant]
     Dates: start: 20100414, end: 20100419

REACTIONS (1)
  - STEVENS-JOHNSON SYNDROME [None]
